FAERS Safety Report 5614113-X (Version None)
Quarter: 2008Q1

REPORT INFORMATION
  Report Type: 
  Country: None (occurrence: None)
  Receive Date: 20080205
  Receipt Date: 20080124
  Transmission Date: 20080703
  Serious: Yes (Hospitalization)
  Sender: FDA-Public Use
  Company Number: US-WYE-H02320408

PATIENT
  Sex: Male
  Weight: 98.97 kg

DRUGS (2)
  1. TEMSIROLIMUS [Suspect]
     Indication: MANTLE CELL LYMPHOMA
     Route: 042
     Dates: start: 20070803, end: 20071201
  2. TEMSIROLIMUS [Suspect]
     Route: 042
     Dates: start: 20071210

REACTIONS (1)
  - PLEURAL EFFUSION [None]
